FAERS Safety Report 7671801-1 (Version None)
Quarter: 2011Q3

REPORT INFORMATION
  Report Type: 
  Country: None (occurrence: None)
  Receive Date: 20110804
  Receipt Date: 20110719
  Transmission Date: 20111222
  Serious: No
  Sender: FDA-Public Use
  Company Number: DAV-AE-ALP-11-007

PATIENT
  Sex: Female
  Weight: 93.441 kg

DRUGS (5)
  1. METFORMIN HCL [Concomitant]
  2. DESIPRAMIDE HCL [Concomitant]
  3. ALPRAZOLAM [Suspect]
     Indication: ANXIETY
     Dosage: 0.5MG
  4. CLONIDINE [Concomitant]
  5. GLIMEPIRIDE [Concomitant]

REACTIONS (3)
  - LIP PAIN [None]
  - THERMAL BURN [None]
  - OEDEMA MOUTH [None]
